FAERS Safety Report 9800911 (Version 1)
Quarter: 2014Q1

REPORT INFORMATION
  Report Type: Spontaneous
  Country: FR (occurrence: FR)
  Receive Date: 20140107
  Receipt Date: 20140107
  Transmission Date: 20141002
  Serious: No
  Sender: FDA-Public Use
  Company Number: FR-JNJFOC-20131216350

PATIENT
  Age: 76 Year
  Sex: Male
  Weight: 55 kg

DRUGS (7)
  1. DUROGESIC [Suspect]
     Indication: PRODUCT USED FOR UNKNOWN INDICATION
     Route: 062
  2. DUROGESIC [Suspect]
     Indication: PRODUCT USED FOR UNKNOWN INDICATION
     Route: 062
     Dates: start: 20130721, end: 20130722
  3. ACTISKENAN [Suspect]
     Indication: PRODUCT USED FOR UNKNOWN INDICATION
     Route: 048
     Dates: start: 20130721, end: 20130722
  4. CREON [Concomitant]
     Route: 065
  5. LANTUS [Concomitant]
     Route: 065
  6. ZOLOFT [Concomitant]
     Route: 065
  7. LASILIX [Concomitant]
     Indication: POLYURIA
     Route: 065

REACTIONS (4)
  - Somnolence [Recovered/Resolved]
  - Miosis [Unknown]
  - Accidental overdose [Unknown]
  - Drug administration error [Unknown]
